FAERS Safety Report 9851043 (Version 1)
Quarter: 2014Q1

REPORT INFORMATION
  Report Type: Spontaneous
  Country: US (occurrence: US)
  Receive Date: 20140128
  Receipt Date: 20140128
  Transmission Date: 20141002
  Serious: No
  Sender: FDA-Public Use
  Company Number: US-DYAX CORP.-2012DX000265

PATIENT
  Age: 17 Year
  Sex: Female
  Weight: 88.08 kg

DRUGS (1)
  1. KALBITOR [Suspect]
     Indication: HEREDITARY ANGIOEDEMA
     Route: 058
     Dates: start: 20121205, end: 20121205

REACTIONS (2)
  - Injection site discolouration [Unknown]
  - Injection site urticaria [Recovered/Resolved]
